FAERS Safety Report 8187001-5 (Version None)
Quarter: 2012Q1

REPORT INFORMATION
  Report Type: 
  Country: None (occurrence: None)
  Receive Date: 20120301
  Receipt Date: 20120220
  Transmission Date: 20120608
  Serious: Yes (Other)
  Sender: FDA-Public Use
  Company Number: US-1190419

PATIENT
  Age: 80 Year
  Sex: Male
  Weight: 97.5234 kg

DRUGS (4)
  1. BSS [Suspect]
     Indication: INTRAOCULAR LENS IMPLANT
     Dosage: (INTRAOCULAR)
     Dates: start: 20120206, end: 20120206
  2. ZYMAXID [Concomitant]
  3. BSS PLUS [Suspect]
     Indication: INTRAOCULAR LENS IMPLANT
     Dosage: (INTRAOCULAR)
     Dates: start: 20120206, end: 20120206
  4. BETADINE [Suspect]
     Indication: INTRAOCULAR LENS IMPLANT
     Dosage: (OPHTHALMIC)
     Route: 047
     Dates: start: 20120206, end: 20120206

REACTIONS (2)
  - TOXIC ANTERIOR SEGMENT SYNDROME [None]
  - INTRAOCULAR PRESSURE INCREASED [None]
